FAERS Safety Report 9588149 (Version 1)
Quarter: 2013Q4

REPORT INFORMATION
  Report Type: Spontaneous
  Country: US (occurrence: US)
  Receive Date: 20131003
  Receipt Date: 20131003
  Transmission Date: 20140711
  Serious: No
  Sender: FDA-Public Use
  Company Number: US-AMGEN-USASP2012068156

PATIENT
  Age: 57 Year
  Sex: Female

DRUGS (5)
  1. ENBREL [Suspect]
     Indication: RHEUMATOID ARTHRITIS
     Dosage: 50 MG, QWK
     Route: 058
     Dates: start: 20080118, end: 20090318
  2. ATENOLOL [Concomitant]
     Dosage: UNK
  3. LASIX                              /00032601/ [Concomitant]
     Dosage: UNK
  4. BENTYL [Concomitant]
     Dosage: UNK
  5. DONNATAL [Concomitant]
     Dosage: UNK, PRN

REACTIONS (1)
  - Rheumatoid arthritis [Unknown]
